FAERS Safety Report 23604486 (Version 2)
Quarter: 2024Q1

REPORT INFORMATION
  Report Type: Spontaneous
  Country: US (occurrence: None)
  Receive Date: 20240307
  Receipt Date: 20240314
  Transmission Date: 20240409
  Serious: Yes (Other)
  Sender: FDA-Public Use
  Company Number: 2024A054116

PATIENT
  Sex: Female

DRUGS (1)
  1. SYMBICORT [Suspect]
     Active Substance: BUDESONIDE\FORMOTEROL FUMARATE DIHYDRATE
     Dosage: 160/4.5 UG, UNKNOWN UNKNOWN
     Route: 055

REACTIONS (6)
  - Glaucoma [Unknown]
  - Illness [Unknown]
  - Rhinorrhoea [Unknown]
  - Cough [Unknown]
  - Product dose omission issue [Unknown]
  - Product packaging quantity issue [Unknown]
